FAERS Safety Report 6519185-6 (Version None)
Quarter: 2009Q4

REPORT INFORMATION
  Report Type: 
  Country: None (occurrence: None)
  Receive Date: 20091224
  Receipt Date: 20091224
  Transmission Date: 20100525
  Serious: No
  Sender: FDA-Public Use
  Company Number: None

PATIENT
  Age: 25 Year
  Sex: Female

DRUGS (1)
  1. ZYBAN [Suspect]
     Indication: SMOKING CESSATION THERAPY
     Dosage: 1 TABLET TWICE A DAY PO
     Route: 048

REACTIONS (5)
  - DEPRESSION [None]
  - DRY THROAT [None]
  - DYSARTHRIA [None]
  - FEELING JITTERY [None]
  - INSOMNIA [None]
